FAERS Safety Report 21163882 (Version 1)
Quarter: 2022Q3

REPORT INFORMATION
  Report Type: Report from Study
  Country: US (occurrence: US)
  Receive Date: 20220803
  Receipt Date: 20220803
  Transmission Date: 20221026
  Serious: Yes (Hospitalization, Other)
  Sender: FDA-Public Use
  Company Number: US-BRISTOL-MYERS SQUIBB COMPANY-2022-083705

PATIENT
  Age: 52 Year
  Sex: Male
  Weight: 65.86 kg

DRUGS (16)
  1. DASATINIB [Suspect]
     Active Substance: DASATINIB
     Indication: Pancreatic carcinoma
     Dosage: DAILY 1-14
     Route: 048
     Dates: start: 20141216, end: 20150924
  2. OXALIPLATIN [Suspect]
     Active Substance: OXALIPLATIN
     Indication: Pancreatic carcinoma
     Route: 042
     Dates: start: 20141216, end: 20150924
  3. LEUCOVORIN CALCIUM [Suspect]
     Active Substance: LEUCOVORIN CALCIUM
     Indication: Pancreatic carcinoma
     Route: 042
     Dates: start: 20141216, end: 20150924
  4. FLUOROURACIL [Suspect]
     Active Substance: FLUOROURACIL
     Indication: Pancreatic carcinoma
     Route: 042
     Dates: start: 20141216, end: 20150924
  5. FLUOROURACIL [Suspect]
     Active Substance: FLUOROURACIL
     Dosage: BOLIS
     Route: 042
     Dates: start: 20141216, end: 20150924
  6. ENOXAPARIN [Concomitant]
     Active Substance: ENOXAPARIN
     Indication: Product used for unknown indication
     Dosage: 80MG/0.8ML 2X DAILY
     Dates: start: 20150511
  7. FENTANYL [Concomitant]
     Active Substance: FENTANYL
     Indication: Product used for unknown indication
     Dosage: 1 PATCH EVERY 72 HRS
     Dates: start: 20150511
  8. INSULIN NOS [Concomitant]
     Active Substance: INSULIN NOS
     Indication: Product used for unknown indication
     Dosage: PEN NEEDLE 32G X
     Dates: start: 20150511
  9. ONDANSETRON [Concomitant]
     Active Substance: ONDANSETRON
     Indication: Product used for unknown indication
     Dosage: 4X DAILY PRN
     Dates: start: 20150511
  10. OXYCODONE [Concomitant]
     Active Substance: OXYCODONE
     Indication: Product used for unknown indication
     Dosage: 10MG 4X DAILY PRN
     Dates: start: 20150511
  11. LORAZEPAM [Concomitant]
     Active Substance: LORAZEPAM
     Indication: Product used for unknown indication
     Dosage: 0.5MG 4X DAILY PRN
     Dates: start: 20150511
  12. PROCHLORPERAZINE [Concomitant]
     Active Substance: PROCHLORPERAZINE
     Indication: Product used for unknown indication
     Dosage: 10MG 4X DAILY PRN
     Dates: start: 20150511
  13. DOCUSATE SODIUM [Concomitant]
     Active Substance: DOCUSATE SODIUM
     Indication: Product used for unknown indication
     Dosage: 100 MG 2X DAILY;
     Dates: start: 20150511
  14. MEGESTROL [Concomitant]
     Active Substance: MEGESTROL
     Indication: Product used for unknown indication
     Dosage: 800MG/20ML (400-800 MG DAILY
     Dates: start: 20150511
  15. PANCRELIPASE [Concomitant]
     Active Substance: PANCRELIPASE
     Indication: Product used for unknown indication
     Dosage: 5000 UNITS 3X DAILY
     Dates: start: 20150511
  16. PEGFILGRASTIM [Concomitant]
     Active Substance: PEGFILGRASTIM
     Indication: Product used for unknown indication
     Dosage: 6MG/0.6ML 6 MG SC AT TIME OF CHEMO PUMP TAKEDOWN.  REPEAT Q 2 WEEKS AFTER EACH CHEMO.
     Route: 058
     Dates: start: 20150511

REACTIONS (1)
  - Clostridium difficile colitis [Unknown]

NARRATIVE: CASE EVENT DATE: 20150504
